FAERS Safety Report 8602252-0 (Version None)
Quarter: 2012Q3

REPORT INFORMATION
  Report Type: 
  Country: None (occurrence: None)
  Receive Date: 20120817
  Receipt Date: 20120808
  Transmission Date: 20120928
  Serious: Yes (Hospitalization)
  Sender: FDA-Public Use
  Company Number: JP-ASTRAZENECA-2012SE56649

PATIENT
  Age: 90 Year
  Sex: Female

DRUGS (6)
  1. NEXIUM [Suspect]
     Indication: HELICOBACTER INFECTION
     Route: 048
     Dates: start: 20120729, end: 20120730
  2. EXFORGE [Suspect]
     Dosage: EVERY DAY
     Route: 048
  3. DOXAZOSIN MESYLATE [Suspect]
     Route: 048
  4. OMEPRAZOLE [Suspect]
     Indication: HELICOBACTER INFECTION
     Route: 048
     Dates: start: 20120724, end: 20120727
  5. OMEPRAZOLE [Suspect]
     Indication: HELICOBACTER INFECTION
     Route: 042
     Dates: start: 20120727, end: 20120729
  6. VALSARTAN  AND HYDROCHLOROTHIAZIDE [Suspect]
     Dosage: EVERY DAY
     Route: 048

REACTIONS (3)
  - HAEMATEMESIS [None]
  - FEELING ABNORMAL [None]
  - GASTROINTESTINAL EROSION [None]
